FAERS Safety Report 9932657 (Version 1)
Quarter: 2014Q1

REPORT INFORMATION
  Report Type: Spontaneous
  Country: US (occurrence: US)
  Receive Date: 20140228
  Receipt Date: 20140228
  Transmission Date: 20141002
  Serious: Yes (Hospitalization)
  Sender: FDA-Public Use
  Company Number: US-GLAXOSMITHKLINE-A1018724A

PATIENT
  Age: 51 Year
  Sex: Female
  Weight: 78.2 kg

DRUGS (4)
  1. IMITREX [Suspect]
     Indication: MIGRAINE
     Route: 065
  2. TOLECTIN [Suspect]
     Indication: INFLAMMATION
     Route: 065
     Dates: start: 1992
  3. ALEVE [Suspect]
     Indication: PRODUCT USED FOR UNKNOWN INDICATION
     Route: 065
  4. LORTAB [Concomitant]
     Indication: PAIN

REACTIONS (2)
  - Hypersensitivity [Unknown]
  - Ear discomfort [Unknown]
